FAERS Safety Report 6714034-5 (Version None)
Quarter: 2010Q2

REPORT INFORMATION
  Report Type: 
  Country: None (occurrence: None)
  Receive Date: 20100506
  Receipt Date: 20100428
  Transmission Date: 20101027
  Serious: Yes (Other)
  Sender: FDA-Public Use
  Company Number: PHHY2010US19385

PATIENT
  Sex: Female

DRUGS (4)
  1. EXTAVIA [Suspect]
     Indication: MULTIPLE SCLEROSIS
     Dosage: 1 ML, QOD
     Route: 058
     Dates: start: 20100324
  2. EXTAVIA [Suspect]
     Dosage: 0.25 ML, QOD
     Route: 058
  3. NAPROXEN [Concomitant]
     Dosage: UNK,UNK
  4. CYMBALTA [Concomitant]
     Dosage: UNK,UNK

REACTIONS (9)
  - ABDOMINAL DISCOMFORT [None]
  - CHILLS [None]
  - HEADACHE [None]
  - HYPERHIDROSIS [None]
  - INSOMNIA [None]
  - NERVOUSNESS [None]
  - PAIN [None]
  - THROAT TIGHTNESS [None]
  - TREATMENT NONCOMPLIANCE [None]
